FAERS Safety Report 9605199 (Version 2)
Quarter: 2013Q4

REPORT INFORMATION
  Report Type: Report from Study
  Country: US (occurrence: US)
  Receive Date: 20131008
  Receipt Date: 20131008
  Transmission Date: 20140711
  Serious: Yes (Other)
  Sender: FDA-Public Use
  Company Number: US-ACTELION-A-NJ2013-84114

PATIENT
  Age: 77 Year
  Sex: Female

DRUGS (6)
  1. TRACLEER [Suspect]
     Indication: PULMONARY ARTERIAL HYPERTENSION
     Dosage: 125 MG, BID
     Route: 048
     Dates: end: 20130515
  2. TRACLEER [Suspect]
     Dosage: 62.5 MG, BID
     Route: 048
  3. TRACLEER [Suspect]
     Dosage: UNK UNK, BID
     Route: 048
     Dates: start: 20130626
  4. PLAVIX [Concomitant]
     Dosage: 75 MG, UNK
  5. ASPIRIN [Concomitant]
     Dosage: 81 MG, UNK
  6. LASIX [Concomitant]
     Dosage: 40 MG, UNK

REACTIONS (6)
  - Liver function test abnormal [Recovering/Resolving]
  - Alanine aminotransferase [Recovering/Resolving]
  - Aspartate aminotransferase [Recovering/Resolving]
  - Blood alkaline phosphatase [Recovering/Resolving]
  - Renal function test abnormal [Recovering/Resolving]
  - Dyspnoea [Recovering/Resolving]
